FAERS Safety Report 12652000 (Version 3)
Quarter: 2016Q4

REPORT INFORMATION
  Report Type: Spontaneous
  Country: BR (occurrence: BR)
  Receive Date: 20160815
  Receipt Date: 20161017
  Transmission Date: 20170207
  Serious: Yes (Hospitalization)
  Sender: FDA-Public Use
  Company Number: BR-PFIZER INC-2016384885

PATIENT
  Age: 79 Year
  Sex: Female
  Weight: 62 kg

DRUGS (10)
  1. FRONTAL [Suspect]
     Active Substance: ALPRAZOLAM
     Indication: SLEEP DISORDER
     Dosage: 2 TABLETS OF 0.25 MG DAILY (ONE IN THE MORNING AND ONE AT NIGHT)
     Route: 048
     Dates: start: 2016
  2. SELOKEN /00376902/ [Concomitant]
     Active Substance: METOPROLOL TARTRATE
     Dosage: 50 MG, 1X/DAY (100 MG OF HALF TABLET ONCE DAILY)
     Route: 048
     Dates: start: 2000, end: 2016
  3. SELOZOK [Concomitant]
     Active Substance: METOPROLOL SUCCINATE
     Dosage: 25 MG, 1X/DAY
     Route: 048
     Dates: start: 2016
  4. FLUOXETINE [Concomitant]
     Active Substance: FLUOXETINE HYDROCHLORIDE
     Dosage: 20 MG, 1 TABLET IN THE MORNING
     Route: 048
     Dates: start: 2016
  5. LOSARTAN. [Concomitant]
     Active Substance: LOSARTAN
     Indication: CARDIAC DISORDER
     Dosage: 12.5 MG, IN THE MORNING
     Route: 048
     Dates: start: 2000
  6. FRONTAL [Suspect]
     Active Substance: ALPRAZOLAM
     Indication: RELAXATION THERAPY
     Dosage: 1 TABLET OF 0.25 MG IN THE MORNING
     Route: 048
     Dates: start: 2013, end: 2016
  7. AMIODARONE [Concomitant]
     Active Substance: AMIODARONE
     Indication: CARDIAC DISORDER
     Dosage: 200 MG, 1 TABLET IN THE MORNING AND 1 AT NIGHT
     Route: 048
     Dates: start: 201606
  8. OMEPRAZOLE. [Concomitant]
     Active Substance: OMEPRAZOLE
     Dosage: 1 TABLET IN THE MORNIG FASTING
     Route: 048
     Dates: start: 2016
  9. ATORVASTATIN [Concomitant]
     Active Substance: ATORVASTATIN
     Indication: BLOOD CHOLESTEROL
     Dosage: 40 MG, 1 TABLET AT 22H
     Route: 048
     Dates: start: 2016
  10. DAFORIN [Concomitant]
     Active Substance: FLUOXETINE HYDROCHLORIDE
     Dosage: UNK

REACTIONS (5)
  - Arrhythmia [Recovered/Resolved]
  - Joint stiffness [Recovered/Resolved]
  - Hyperhidrosis [Recovered/Resolved]
  - Vomiting [Recovered/Resolved]
  - Blood pressure abnormal [Recovered/Resolved]

NARRATIVE: CASE EVENT DATE: 201606
